FAERS Safety Report 5672776-7 (Version None)
Quarter: 2008Q1

REPORT INFORMATION
  Report Type: 
  Country: None (occurrence: None)
  Receive Date: 20080319
  Receipt Date: 20070314
  Transmission Date: 20080703
  Serious: No
  Sender: FDA-Public Use
  Company Number: US-KINGPHARMUSA00001-K200700305

PATIENT

DRUGS (10)
  1. ALTACE [Suspect]
     Indication: HYPERTENSION
     Dates: start: 20050101, end: 20070306
  2. ALTACE [Suspect]
     Indication: DIABETES MELLITUS
  3. HYDROCHLOROTHIAZIDE [Concomitant]
  4. KADIAN [Concomitant]
  5. POTASSIUM CHLORIDE [Concomitant]
  6. REQUIP [Concomitant]
     Dates: start: 20060901
  7. XANAX [Concomitant]
  8. NEXIUM [Concomitant]
  9. PROTONIX                           /01263201/ [Concomitant]
  10. ZANAFLEX [Concomitant]

REACTIONS (2)
  - ALOPECIA [None]
  - LABILE BLOOD PRESSURE [None]
